FAERS Safety Report 4778352-2 (Version None)
Quarter: 2005Q3

REPORT INFORMATION
  Report Type: 
  Country: None (occurrence: None)
  Receive Date: 20050922
  Receipt Date: 20050919
  Transmission Date: 20060218
  Serious: Yes (Other)
  Sender: FDA-Public Use
  Company Number: US-2005-013029

PATIENT
  Age: 62 Year
  Sex: Female

DRUGS (14)
  1. BETASERON [Suspect]
     Indication: RELAPSING-REMITTING MULTIPLE SCLEROSIS
     Dosage: 8 MIU, EVERY 2D, SUBCUTANEOUS
     Route: 058
     Dates: start: 20020325, end: 20050613
  2. PROVIGIL [Concomitant]
  3. NEURONTIN [Concomitant]
  4. IBUPROFEN [Concomitant]
  5. NEXIUM [Concomitant]
  6. MECLIZINE [Concomitant]
  7. CLONAZEPAM [Concomitant]
  8. PHENERGAN [Concomitant]
  9. PROZAC [Concomitant]
  10. OXYCODONE HCL [Concomitant]
  11. SYNTHROID [Concomitant]
  12. VITAMIN B-12 [Concomitant]
  13. VITAMIN E [Concomitant]
  14. ASCORBIC ACID [Concomitant]

REACTIONS (6)
  - DELIRIUM [None]
  - OROPHARYNGEAL SWELLING [None]
  - PRURITUS [None]
  - REFUSAL OF TREATMENT BY PATIENT [None]
  - SKIN DISORDER [None]
  - URTICARIA [None]
